FAERS Safety Report 15623108 (Version 3)
Quarter: 2018Q4

REPORT INFORMATION
  Report Type: Spontaneous
  Country: JP (occurrence: JP)
  Receive Date: 20181115
  Receipt Date: 20181219
  Transmission Date: 20190205
  Serious: No
  Sender: FDA-Public Use
  Company Number: JP-JNJFOC-20181112862

PATIENT
  Age: 50 Year
  Sex: Male

DRUGS (1)
  1. TREMFYA [Suspect]
     Active Substance: GUSELKUMAB
     Indication: PRODUCT USED FOR UNKNOWN INDICATION
     Dosage: STRENGTH: 100MG
     Route: 058
     Dates: start: 20180801

REACTIONS (1)
  - Upper respiratory tract inflammation [Unknown]

NARRATIVE: CASE EVENT DATE: 20181028
